FAERS Safety Report 10766683 (Version 2)
Quarter: 2015Q1

REPORT INFORMATION
  Report Type: Spontaneous
  Country: US (occurrence: US)
  Receive Date: 20150205
  Receipt Date: 20150305
  Transmission Date: 20150721
  Serious: Yes (Hospitalization)
  Sender: FDA-Public Use
  Company Number: US-JNJFOC-20150203294

PATIENT
  Age: 85 Year
  Sex: Male
  Weight: 64 kg

DRUGS (3)
  1. IMBRUVICA [Suspect]
     Active Substance: IBRUTINIB
     Indication: CHRONIC LYMPHOCYTIC LEUKAEMIA
     Dosage: 420 DF
     Route: 048
     Dates: start: 20141220, end: 20150115
  2. ASPIRIN. [Concomitant]
     Active Substance: ASPIRIN
     Indication: CORONARY ARTERY DISEASE
  3. IMBRUVICA [Suspect]
     Active Substance: IBRUTINIB
     Indication: CHRONIC LYMPHOCYTIC LEUKAEMIA
     Route: 048
     Dates: start: 20150118, end: 20150126

REACTIONS (4)
  - Joint injury [Unknown]
  - Bursitis [Unknown]
  - Haematoma [Unknown]
  - Arthralgia [Unknown]

NARRATIVE: CASE EVENT DATE: 20150115
